FAERS Safety Report 23514854 (Version 1)
Quarter: 2024Q1

REPORT INFORMATION
  Report Type: Spontaneous
  Country: US (occurrence: US)
  Receive Date: 20240212
  Receipt Date: 20240212
  Transmission Date: 20240410
  Serious: Yes (Other)
  Sender: FDA-Public Use
  Company Number: US-RADIUS HEALTH, INC.-2020US004606

PATIENT
  Age: 70 Year
  Sex: Female

DRUGS (2)
  1. TYMLOS [Suspect]
     Active Substance: ABALOPARATIDE
     Indication: Osteopenia
     Dosage: 80 MCG, QD
     Route: 058
     Dates: start: 20201219
  2. TYMLOS [Suspect]
     Active Substance: ABALOPARATIDE
     Indication: Spinal operation

REACTIONS (2)
  - Malignant melanoma [Recovered/Resolved]
  - Product use in unapproved indication [Not Recovered/Not Resolved]

NARRATIVE: CASE EVENT DATE: 20201215
